FAERS Safety Report 11455642 (Version 1)
Quarter: 2015Q3

REPORT INFORMATION
  Report Type: Spontaneous
  Country: US (occurrence: US)
  Receive Date: 20150903
  Receipt Date: 20150903
  Transmission Date: 20151125
  Serious: No
  Sender: FDA-Public Use
  Company Number: US-BEH-2014045880

PATIENT
  Age: 62 Year
  Sex: Male

DRUGS (2)
  1. ZEMAIRA [Suspect]
     Active Substance: .ALPHA.1-PROTEINASE INHIBITOR HUMAN
     Indication: PRODUCT USED FOR UNKNOWN INDICATION
  2. RECLAST [Suspect]
     Active Substance: ZOLEDRONIC ACID
     Dosage: INFUSED IN AUGUST

REACTIONS (2)
  - Weight decreased [Unknown]
  - Weight gain poor [Unknown]

NARRATIVE: CASE EVENT DATE: 201408
